FAERS Safety Report 12326931 (Version 3)
Quarter: 2016Q3

REPORT INFORMATION
  Report Type: Spontaneous
  Country: US (occurrence: US)
  Receive Date: 20160503
  Receipt Date: 20160727
  Transmission Date: 20161109
  Serious: Yes (Hospitalization)
  Sender: FDA-Public Use
  Company Number: US-PFIZER INC-2016230590

PATIENT
  Age: 69 Year
  Sex: Female

DRUGS (2)
  1. CHANTIX [Suspect]
     Active Substance: VARENICLINE TARTRATE
     Indication: SMOKING CESSATION THERAPY
     Dosage: UNK, STARTER PACK
     Dates: start: 20151217, end: 201512
  2. CHANTIX [Suspect]
     Active Substance: VARENICLINE TARTRATE
     Dosage: UNK, STARTER PACK AND CONTINUING PACK
     Dates: start: 20160223, end: 20160407

REACTIONS (11)
  - Abdominal distension [Recovered/Resolved]
  - Fall [Unknown]
  - Insomnia [Recovered/Resolved]
  - Hip fracture [Unknown]
  - Flatulence [Not Recovered/Not Resolved]
  - Abdominal discomfort [Recovered/Resolved]
  - Drug ineffective [Unknown]
  - Constipation [Recovered/Resolved]
  - Lower limb fracture [Unknown]
  - Asthenia [Recovering/Resolving]
  - Weight increased [Unknown]

NARRATIVE: CASE EVENT DATE: 201512
